FAERS Safety Report 5415727-2 (Version None)
Quarter: 2007Q3

REPORT INFORMATION
  Report Type: 
  Country: None (occurrence: None)
  Receive Date: 20070718
  Receipt Date: 20070117
  Transmission Date: 20080115
  Serious: Yes (Other)
  Sender: FDA-Public Use
  Company Number: 2007005547

PATIENT
  Age: 75 Year
  Sex: Female
  Weight: 77.1 kg

DRUGS (8)
  1. CELEBREX [Suspect]
     Indication: FIBROMYALGIA
     Dosage: 100 MG (100 MG, 1 IN 1 D)
  2. TERAZOSIN HCL [Concomitant]
  3. MIRTAZAPINE [Concomitant]
  4. LABETALOL HCL [Concomitant]
  5. LISINOPRIL [Concomitant]
  6. FUROSEMIDE [Concomitant]
  7. NORVASC [Concomitant]
  8. LIPITOR [Concomitant]

REACTIONS (2)
  - DRUG INEFFECTIVE [None]
  - PNEUMONIA [None]
